FAERS Safety Report 5534575-6 (Version None)
Quarter: 2007Q4

REPORT INFORMATION
  Report Type: 
  Country: None (occurrence: None)
  Receive Date: 20071205
  Receipt Date: 20071128
  Transmission Date: 20080405
  Serious: No
  Sender: FDA-Public Use
  Company Number: US-ELI_LILLY_AND_COMPANY-US200712000118

PATIENT
  Age: 72 Year
  Sex: Male

DRUGS (2)
  1. CYMBALTA [Suspect]
     Dosage: 30 MG, UNK
     Dates: start: 20071101, end: 20071101
  2. CYMBALTA [Suspect]
     Dosage: 60 MG, UNK

REACTIONS (3)
  - DEPRESSION [None]
  - LETHARGY [None]
  - LIVER FUNCTION TEST ABNORMAL [None]
